FAERS Safety Report 23385669 (Version 5)
Quarter: 2025Q2

REPORT INFORMATION
  Report Type: Report from Study
  Country: ES (occurrence: ES)
  Receive Date: 20240110
  Receipt Date: 20250415
  Transmission Date: 20250716
  Serious: Yes (Death, Other)
  Sender: CELLTRION
  Company Number: ES-CELLTRION INC.-2024ES000306

PATIENT

DRUGS (27)
  1. RITUXIMAB [Suspect]
     Active Substance: RITUXIMAB
     Indication: Mantle cell lymphoma
     Route: 065
  2. MYCOPHENOLATE MOFETIL [Suspect]
     Active Substance: MYCOPHENOLATE MOFETIL
     Indication: Prophylaxis against transplant rejection
     Route: 065
  3. OBINUTUZUMAB [Suspect]
     Active Substance: OBINUTUZUMAB
     Indication: Mantle cell lymphoma
     Route: 042
  4. GEMCITABINE [Suspect]
     Active Substance: GEMCITABINE
     Indication: Mantle cell lymphoma
     Route: 065
  5. BUSULFAN [Suspect]
     Active Substance: BUSULFAN
     Indication: Prophylaxis against transplant rejection
     Route: 065
  6. BUSULFAN [Suspect]
     Active Substance: BUSULFAN
     Indication: Allogenic stem cell transplantation
  7. TACROLIMUS [Suspect]
     Active Substance: TACROLIMUS
     Indication: Prophylaxis against transplant rejection
     Route: 065
  8. FLUDARABINE [Suspect]
     Active Substance: FLUDARABINE PHOSPHATE
     Indication: Prophylaxis against transplant rejection
     Route: 065
  9. FLUDARABINE [Suspect]
     Active Substance: FLUDARABINE PHOSPHATE
     Indication: Allogenic stem cell transplantation
  10. VINCRISTINE [Suspect]
     Active Substance: VINCRISTINE
     Indication: Mantle cell lymphoma
     Route: 065
  11. IFOSFAMIDE [Suspect]
     Active Substance: IFOSFAMIDE
     Indication: Mantle cell lymphoma
     Route: 065
  12. CARBOPLATIN [Suspect]
     Active Substance: CARBOPLATIN
     Indication: Mantle cell lymphoma
     Route: 065
  13. CYCLOPHOSPHAMIDE [Suspect]
     Active Substance: CYCLOPHOSPHAMIDE
     Indication: Prophylaxis against transplant rejection
     Route: 065
  14. CYCLOPHOSPHAMIDE [Suspect]
     Active Substance: CYCLOPHOSPHAMIDE
     Indication: Mantle cell lymphoma
  15. OXALIPLATIN [Suspect]
     Active Substance: OXALIPLATIN
     Indication: Mantle cell lymphoma
     Route: 065
  16. DEXAMETHASONE [Suspect]
     Active Substance: DEXAMETHASONE
     Indication: Mantle cell lymphoma
     Route: 065
  17. ADRIAMYCIN [Suspect]
     Active Substance: DOXORUBICIN HYDROCHLORIDE
     Indication: Mantle cell lymphoma
     Route: 065
  18. THIOTEPA [Suspect]
     Active Substance: THIOTEPA
     Indication: Prophylaxis against transplant rejection
     Route: 065
  19. THIOTEPA [Suspect]
     Active Substance: THIOTEPA
     Indication: Allogenic stem cell transplantation
  20. ETOPOSIDE [Suspect]
     Active Substance: ETOPOSIDE
     Indication: Mantle cell lymphoma
     Route: 065
  21. GLOFITAMAB [Suspect]
     Active Substance: GLOFITAMAB
     Indication: Mantle cell lymphoma
     Route: 042
  22. IBRUTINIB [Suspect]
     Active Substance: IBRUTINIB
     Indication: Mantle cell lymphoma
     Route: 065
  23. POLATUZUMAB VEDOTIN [Suspect]
     Active Substance: POLATUZUMAB VEDOTIN
     Indication: Mantle cell lymphoma
     Route: 065
  24. SULFAMETHOXAZOLE\TRIMETHOPRIM [Concomitant]
     Active Substance: SULFAMETHOXAZOLE\TRIMETHOPRIM
     Indication: Infection prophylaxis
  25. ACYCLOVIR [Concomitant]
     Active Substance: ACYCLOVIR
     Indication: Infection prophylaxis
  26. PENTAMIDINE [Concomitant]
     Active Substance: PENTAMIDINE
     Indication: Infection prophylaxis
  27. POSACONAZOLE [Concomitant]
     Active Substance: POSACONAZOLE
     Indication: Infection prophylaxis

REACTIONS (5)
  - Graft versus host disease in gastrointestinal tract [Fatal]
  - Graft versus host disease [Fatal]
  - Infection [Fatal]
  - Chronic graft versus host disease [Unknown]
  - Intentional product use issue [Unknown]
